FAERS Safety Report 4909078-X (Version None)
Quarter: 2006Q1

REPORT INFORMATION
  Report Type: 
  Country: None (occurrence: None)
  Receive Date: 20060213
  Receipt Date: 20040618
  Transmission Date: 20060701
  Serious: Yes (Death)
  Sender: FDA-Public Use
  Company Number: ES-ABBOTT-04P-144-0264246-00

PATIENT
  Age: 66 Year
  Sex: Male

DRUGS (3)
  1. KALETRA [Suspect]
     Indication: HIV INFECTION
     Route: 048
     Dates: start: 20030409
  2. STAVUDINE [Concomitant]
     Indication: HIV INFECTION
     Dates: start: 20030409
  3. LAMIVUDINE [Concomitant]
     Indication: HIV INFECTION
     Dates: start: 20030409

REACTIONS (2)
  - AORTIC VALVE DISEASE [None]
  - CONDITION AGGRAVATED [None]
